FAERS Safety Report 5580272-0 (Version None)
Quarter: 2008Q1

REPORT INFORMATION
  Report Type: 
  Country: None (occurrence: None)
  Receive Date: 20080103
  Receipt Date: 20071227
  Transmission Date: 20080703
  Serious: Yes (Hospitalization)
  Sender: FDA-Public Use
  Company Number: B0493906A

PATIENT
  Age: 73 Year
  Sex: Female
  Weight: 49 kg

DRUGS (6)
  1. VALTREX [Suspect]
     Indication: HERPES ZOSTER
     Dosage: 1000MG THREE TIMES PER DAY
     Route: 048
     Dates: start: 20071013, end: 20071017
  2. NU-LOTAN [Concomitant]
     Indication: HYPERTENSION
     Dosage: 25MG PER DAY
     Route: 048
     Dates: start: 20021101
  3. SIMVASTATIN [Concomitant]
     Route: 048
     Dates: start: 20010301
  4. CRAVIT [Concomitant]
     Indication: ESCHERICHIA INFECTION
     Route: 048
     Dates: start: 20071006, end: 20071013
  5. CELESTAMINE TAB [Concomitant]
     Indication: DERMATITIS
     Route: 048
     Dates: end: 20071013
  6. BIOFERMIN R [Concomitant]
     Indication: ESCHERICHIA INFECTION
     Dosage: 3G PER DAY
     Route: 048
     Dates: start: 20071006, end: 20071013

REACTIONS (6)
  - ABDOMINAL PAIN UPPER [None]
  - ANOREXIA [None]
  - GASTRIC MUCOSAL LESION [None]
  - MALAISE [None]
  - RENAL FAILURE ACUTE [None]
  - RENAL IMPAIRMENT [None]
